FAERS Safety Report 10063350 (Version 1)
Quarter: 2014Q2

REPORT INFORMATION
  Report Type: Spontaneous
  Country: ZA (occurrence: ZA)
  Receive Date: 20140407
  Receipt Date: 20140407
  Transmission Date: 20141212
  Serious: Yes (Death, Hospitalization, Other)
  Sender: FDA-Public Use
  Company Number: ZA-ROXANE LABORATORIES, INC.-2014-RO-00550RO

PATIENT
  Age: 29 Year
  Sex: Female

DRUGS (3)
  1. PREDNISONE [Suspect]
     Indication: CHOLANGITIS SCLEROSING
     Route: 065
  2. AZATHIOPRINE [Suspect]
     Indication: CHOLANGITIS SCLEROSING
     Route: 065
  3. SALAZOPYRINE [Suspect]
     Indication: CHOLANGITIS SCLEROSING
     Route: 065

REACTIONS (6)
  - Multi-organ failure [Fatal]
  - Adenocarcinoma of colon [Unknown]
  - Sepsis [Recovered/Resolved]
  - Renal failure acute [Recovered/Resolved]
  - Diabetes mellitus [Unknown]
  - Jaundice [Unknown]
